FAERS Safety Report 4721709-6 (Version None)
Quarter: 2005Q3

REPORT INFORMATION
  Report Type: 
  Country: None (occurrence: None)
  Receive Date: 20050721
  Receipt Date: 20050309
  Transmission Date: 20060218
  Serious: No
  Sender: FDA-Public Use
  Company Number: US-BRISTOL-MYERS SQUIBB COMPANY-12890786

PATIENT
  Sex: Male
  Weight: 91 kg

DRUGS (6)
  1. COUMADIN [Suspect]
     Indication: ATRIAL FIBRILLATION
  2. AMIODARONE [Concomitant]
  3. CARDIZEM [Concomitant]
  4. CRESTOR [Concomitant]
  5. REQUIP [Concomitant]
  6. VIAGRA [Concomitant]

REACTIONS (1)
  - ECCHYMOSIS [None]
